FAERS Safety Report 4964569-0 (Version None)
Quarter: 2006Q1

REPORT INFORMATION
  Report Type: 
  Country: None (occurrence: None)
  Receive Date: 20060331
  Receipt Date: 20060316
  Transmission Date: 20060701
  Serious: Yes (Hospitalization)
  Sender: FDA-Public Use
  Company Number: 390002M06FRA

PATIENT
  Age: 34 Year
  Sex: Female

DRUGS (3)
  1. CETROTIDE [Suspect]
     Indication: IN VITRO FERTILISATION
     Dosage: 3 MG, ONCE, SUBCUTANEOUS
     Route: 058
     Dates: start: 20060111, end: 20060111
  2. GONAL-F [Concomitant]
  3. CLOMIPHENE CITRATE (CLOMIPHENE CITRATE) [Concomitant]

REACTIONS (2)
  - ALLERGY TEST POSITIVE [None]
  - DRUG HYPERSENSITIVITY [None]
